FAERS Safety Report 25827327 (Version 1)
Quarter: 2025Q3

REPORT INFORMATION
  Report Type: Report from Study
  Country: EU (occurrence: EU)
  Receive Date: 20250920
  Receipt Date: 20250920
  Transmission Date: 20251021
  Serious: Yes (Death, Hospitalization, Disabling)
  Sender: AMGEN
  Company Number: EU-ROCHE-10000376017

PATIENT

DRUGS (1)
  1. BEVACIZUMAB [Suspect]
     Active Substance: BEVACIZUMAB
     Indication: Neoplasm malignant
     Dosage: 1000 MILLIGRAM, Q3WK
     Route: 040
     Dates: start: 20250415

REACTIONS (2)
  - Vomiting [Fatal]
  - Blood bilirubin increased [Fatal]

NARRATIVE: CASE EVENT DATE: 20250825
